FAERS Safety Report 23500558 (Version 3)
Quarter: 2024Q2

REPORT INFORMATION
  Report Type: Report from Study
  Country: CO (occurrence: CO)
  Receive Date: 20240208
  Receipt Date: 20240415
  Transmission Date: 20240716
  Serious: Yes (Death, Hospitalization, Other)
  Sender: FDA-Public Use
  Company Number: CO-UCBSA-2022061699

PATIENT
  Age: 68 Year
  Sex: Male
  Weight: 60 kg

DRUGS (5)
  1. ROTIGOTINE [Suspect]
     Active Substance: ROTIGOTINE
     Indication: Parkinson^s disease
     Dosage: 8 MILLIGRAM, ONCE DAILY (QD)
     Route: 062
     Dates: start: 20200831, end: 20221010
  2. ROTIGOTINE [Suspect]
     Active Substance: ROTIGOTINE
     Indication: Progressive supranuclear palsy
     Dosage: 8 MILLIGRAM, ONCE DAILY (QD)
     Route: 062
     Dates: start: 20221011, end: 20240215
  3. ROTIGOTINE [Suspect]
     Active Substance: ROTIGOTINE
     Indication: Off label use
  4. CARBIDOPA\LEVODOPA [Concomitant]
     Active Substance: CARBIDOPA\LEVODOPA
     Indication: Parkinson^s disease
     Dosage: 25/250 MILLIGRAM
     Route: 048
     Dates: end: 20221011
  5. QUETIAPINE [Concomitant]
     Active Substance: QUETIAPINE
     Indication: Product used for unknown indication
     Dosage: 150 MILLIGRAM (50MG IN THE DAY, 100MG IN THE EVENING)
     Route: 048
     Dates: start: 20240215

REACTIONS (11)
  - Pneumonia [Fatal]
  - Intestinal obstruction [Unknown]
  - Craniocerebral injury [Unknown]
  - Sedation [Unknown]
  - Gastrointestinal tube insertion [Unknown]
  - Hallucination, visual [Unknown]
  - Fall [Unknown]
  - Dysphagia [Unknown]
  - Progressive supranuclear palsy [Unknown]
  - Off label use [Unknown]
  - Product use issue [Unknown]

NARRATIVE: CASE EVENT DATE: 20200831
